FAERS Safety Report 7000219-X (Version None)
Quarter: 2010Q3

REPORT INFORMATION
  Report Type: 
  Country: None (occurrence: None)
  Receive Date: 20100920
  Receipt Date: 20100507
  Transmission Date: 20110219
  Serious: No
  Sender: FDA-Public Use
  Company Number: US-ASTRAZENECA-2010SE20990

PATIENT
  Age: 68 Year
  Sex: Female
  Weight: 104.3 kg

DRUGS (3)
  1. SEROQUEL [Suspect]
     Indication: BIPOLAR I DISORDER
     Dosage: 100 MG IN THE MORNING AND 400 MG IN THE EVENING
     Route: 048
     Dates: start: 20070101
  2. SEROQUEL [Suspect]
     Indication: SCHIZOPHRENIA
     Dosage: 100 MG IN THE MORNING AND 400 MG IN THE EVENING
     Route: 048
     Dates: start: 20070101
  3. ZYPREXA [Suspect]
     Route: 065

REACTIONS (4)
  - AGITATION [None]
  - ANGER [None]
  - DRUG DOSE OMISSION [None]
  - PSYCHIATRIC SYMPTOM [None]
